FAERS Safety Report 5602903-9 (Version None)
Quarter: 2008Q1

REPORT INFORMATION
  Report Type: 
  Country: None (occurrence: None)
  Receive Date: 20080125
  Receipt Date: 20080104
  Transmission Date: 20080703
  Serious: No
  Sender: FDA-Public Use
  Company Number: US-BOEHRINGER INGELHEIM PHARMACEUTICALS, INC.-2007-BP-26111BP

PATIENT
  Sex: Male

DRUGS (4)
  1. FLOMAX [Suspect]
     Indication: BENIGN PROSTATIC HYPERPLASIA
     Route: 048
     Dates: start: 20070701
  2. FLOMAX [Suspect]
     Indication: POLLAKIURIA
  3. ZOCOR [Concomitant]
  4. AVODART [Concomitant]

REACTIONS (2)
  - DRUG EFFECT DECREASED [None]
  - NOCTURIA [None]
